FAERS Safety Report 9288193 (Version 1)
Quarter: 2013Q2

REPORT INFORMATION
  Report Type: Spontaneous
  Country: US (occurrence: US)
  Receive Date: 20130514
  Receipt Date: 20130514
  Transmission Date: 20140414
  Serious: No
  Sender: FDA-Public Use
  Company Number: US-BAYER-2013-059624

PATIENT
  Age: 76 Year
  Sex: Male
  Weight: 81.63 kg

DRUGS (3)
  1. ALEVE CAPLET [Suspect]
     Indication: MYALGIA
     Dosage: 4 DF, PRN BEFORE BED
     Route: 048
  2. OMEPRAZOL [Concomitant]
  3. MORPHINE [Concomitant]

REACTIONS (1)
  - Incorrect dose administered [None]
